FAERS Safety Report 5902496-2 (Version None)
Quarter: 2008Q3

REPORT INFORMATION
  Report Type: 
  Country: None (occurrence: None)
  Receive Date: 20080925
  Receipt Date: 20080916
  Transmission Date: 20090109
  Serious: Yes (Hospitalization, Other)
  Sender: FDA-Public Use
  Company Number: 2008BI019794

PATIENT
  Sex: Female

DRUGS (1)
  1. TYSABRI [Suspect]
     Indication: MULTIPLE SCLEROSIS
     Dosage: 300 MG; QM; IV
     Route: 042
     Dates: start: 20070220

REACTIONS (4)
  - DECUBITUS ULCER [None]
  - OSTEOMYELITIS [None]
  - WHEELCHAIR USER [None]
  - WOUND INFECTION STAPHYLOCOCCAL [None]
